FAERS Safety Report 5262201-2 (Version None)
Quarter: 2007Q1

REPORT INFORMATION
  Report Type: 
  Country: None (occurrence: None)
  Receive Date: 20070312
  Receipt Date: 20070305
  Transmission Date: 20070707
  Serious: Yes (Death)
  Sender: FDA-Public Use
  Company Number: US-SOLVAY-00207000716

PATIENT
  Age: 44 Year
  Sex: Male

DRUGS (1)
  1. MARINOL [Suspect]
     Indication: HIV WASTING SYNDROME
     Dosage: DAILY DOSE:  UNKNOWN
     Route: 048

REACTIONS (2)
  - DEATH [None]
  - DRUG INEFFECTIVE [None]
